FAERS Safety Report 8503947-X (Version None)
Quarter: 2012Q3

REPORT INFORMATION
  Report Type: 
  Country: None (occurrence: None)
  Receive Date: 20120702
  Receipt Date: 20120615
  Transmission Date: 20120928
  Serious: Yes (Hospitalization)
  Sender: FDA-Public Use
  Company Number: 2012MA006134

PATIENT
  Age: 73 Year
  Sex: Male

DRUGS (2)
  1. ACETAMINOPHEN AND CODEINE PHOSPHATE [Concomitant]
  2. NAPROXEN [Suspect]
     Indication: ARTHRITIS
     Dosage: 500 MG;BID;PO
     Route: 048
     Dates: start: 20120401, end: 20120422

REACTIONS (9)
  - PRESYNCOPE [None]
  - PALLOR [None]
  - FAECES DISCOLOURED [None]
  - HAEMOGLOBIN DECREASED [None]
  - INTERNATIONAL NORMALISED RATIO DECREASED [None]
  - DUODENAL ULCER HAEMORRHAGE [None]
  - DIZZINESS [None]
  - LETHARGY [None]
  - ABDOMINAL PAIN [None]
